FAERS Safety Report 20836147 (Version 1)
Quarter: 2022Q2

REPORT INFORMATION
  Report Type: Spontaneous
  Country: ES (occurrence: ES)
  Receive Date: 20220516
  Receipt Date: 20220516
  Transmission Date: 20220721
  Serious: Yes (Hospitalization, Other)
  Sender: FDA-Public Use
  Company Number: None

PATIENT
  Age: 77 Year
  Sex: Female

DRUGS (1)
  1. YERVOY [Suspect]
     Active Substance: IPILIMUMAB
     Indication: Neuroendocrine tumour
     Dosage: 98 MG DOSIS ?NICA
     Route: 042
     Dates: start: 20211215, end: 20211215

REACTIONS (4)
  - Immune-mediated thyroiditis [Recovered/Resolved]
  - Erythrodermic psoriasis [Recovered/Resolved]
  - Immune-mediated hepatitis [Recovered/Resolved]
  - Intentional product use issue [Unknown]

NARRATIVE: CASE EVENT DATE: 20220202
